FAERS Safety Report 18364675 (Version 3)
Quarter: 2021Q1

REPORT INFORMATION
  Report Type: Spontaneous
  Country: US (occurrence: US)
  Receive Date: 20201009
  Receipt Date: 20210108
  Transmission Date: 20210419
  Serious: No
  Sender: FDA-Public Use
  Company Number: US-PFIZER INC-2020385868

PATIENT
  Age: 71 Year
  Sex: Female

DRUGS (4)
  1. NIVESTYM [Suspect]
     Active Substance: FILGRASTIM-AAFI
     Dosage: 480 MG ONCE A DAY X 5 DAYS, 24 HOURS AFTER CHEMOTHERAPY
  2. NIVESTYM [Suspect]
     Active Substance: FILGRASTIM-AAFI
     Dosage: 480 MG WEEKLY: DAILY, DAYS 2?4 EACH CHEMO CYCLE
  3. NIVESTYM [Suspect]
     Active Substance: FILGRASTIM-AAFI
     Dosage: 480 MG 3 TIMES A WEEK EVERY WEEK FOR 4 WEEKS; ALSO STATES; DAILY DAYS 2?7 EVERY EACH CHEMO CYCLE
     Route: 058
  4. NIVESTYM [Suspect]
     Active Substance: FILGRASTIM-AAFI
     Dosage: 480 UG, EVERY TWO WEEKS
     Route: 058

REACTIONS (3)
  - Product use issue [Unknown]
  - Malaise [Unknown]
  - Off label use [Unknown]
